FAERS Safety Report 9759810 (Version 3)
Quarter: 2014Q1

REPORT INFORMATION
  Report Type: Spontaneous
  Country: US (occurrence: US)
  Receive Date: 20131216
  Receipt Date: 20140320
  Transmission Date: 20141002
  Serious: Yes (Hospitalization, Other)
  Sender: FDA-Public Use
  Company Number: US-PFIZER INC-2013353742

PATIENT
  Age: 76 Year
  Sex: Female

DRUGS (13)
  1. LYRICA [Suspect]
     Indication: NEUROPATHY PERIPHERAL
     Dosage: UNK
  2. LYRICA [Suspect]
     Dosage: 75 MG, (BED)
  3. ASACOL [Concomitant]
     Dosage: 800 MG, 2X/DAY
  4. METOPROLOL [Concomitant]
     Dosage: 100 MG, 2X/DAY
  5. EXELON [Concomitant]
     Dosage: 4.5 MG, 2X/DAY
     Route: 048
  6. LIPITOR [Concomitant]
     Dosage: 40 MG, 1X/DAY
  7. ZOFRAN [Concomitant]
     Dosage: 2 MG, (8 HOURS PRN N/V)
  8. NORVASC [Concomitant]
     Dosage: 5 MG, 1X/DAY
  9. PROTONIX [Concomitant]
     Dosage: 40 MG, 1X/DAY
  10. PROZAC [Concomitant]
     Dosage: 40 MG, 1X/DAY
  11. REMICADE [Concomitant]
     Dosage: UNK
  12. MIRALAX [Concomitant]
     Dosage: UNK
  13. B-12 [Concomitant]
     Dosage: UNK, QD

REACTIONS (18)
  - Pemphigoid [Recovered/Resolved]
  - Hernia [Unknown]
  - Intestinal obstruction [Unknown]
  - Lichenoid keratosis [Recovering/Resolving]
  - Osteoarthritis [Unknown]
  - Pain in extremity [Unknown]
  - Oedema peripheral [Unknown]
  - Nausea [Unknown]
  - Fatigue [Recovering/Resolving]
  - Weight decreased [Unknown]
  - Abdominal pain [Recovered/Resolved]
  - Muscle spasms [Unknown]
  - Dizziness [Unknown]
  - Local swelling [Unknown]
  - Pruritus [Unknown]
  - Eczema [Unknown]
  - Dermatitis [Unknown]
  - Rash [Recovered/Resolved]
